FAERS Safety Report 8888709 (Version 1)
Quarter: 2012Q4

REPORT INFORMATION
  Report Type: 
  Country: FR (occurrence: FR)
  Receive Date: 20121106
  Receipt Date: 20121106
  Transmission Date: 20130627
  Serious: Yes (Other)
  Sender: FDA-Public Use
  Company Number: FR-BRISTOL-MYERS SQUIBB COMPANY-16992182

PATIENT
  Age: 43 Year
  Sex: Male
  Weight: 71 kg

DRUGS (3)
  1. REYATAZ [Suspect]
     Dosage: Ongoing
     Dates: start: 20091204
  2. NORVIR [Suspect]
     Dosage: Ongoing
     Dates: start: 20091204
  3. ISENTRESS [Suspect]
     Dosage: Ongoing
     Dates: start: 20091204

REACTIONS (3)
  - Crystalluria [Unknown]
  - Proteinuria [Unknown]
  - Haematuria [Not Recovered/Not Resolved]
